FAERS Safety Report 6171121-0 (Version None)
Quarter: 2009Q2

REPORT INFORMATION
  Report Type: 
  Country: None (occurrence: None)
  Receive Date: 20090429
  Receipt Date: 20090422
  Transmission Date: 20091009
  Serious: Yes (Life-Threatening, Hospitalization)
  Sender: FDA-Public Use
  Company Number: FR-TYCO HEALTHCARE/MALLINCKRODT-T200900920

PATIENT

DRUGS (1)
  1. OPTIJECT [Suspect]
     Indication: SCAN BRAIN
     Dosage: UNK
     Route: 042
     Dates: start: 20090323, end: 20090323

REACTIONS (5)
  - CARDIAC ARREST [None]
  - COUGH [None]
  - LOSS OF CONSCIOUSNESS [None]
  - MALAISE [None]
  - ORAL DISCOMFORT [None]
